FAERS Safety Report 18580198 (Version 8)
Quarter: 2022Q3

REPORT INFORMATION
  Report Type: Report from Study
  Country: DE (occurrence: DE)
  Receive Date: 20201204
  Receipt Date: 20220720
  Transmission Date: 20221027
  Serious: Yes (Death, Life-Threatening, Hospitalization, Other)
  Sender: FDA-Public Use
  Company Number: DE-BRISTOL-MYERS SQUIBB COMPANY-BMS-2020-083246

PATIENT
  Age: 64 Year
  Sex: Female

DRUGS (16)
  1. NIVOLUMAB [Suspect]
     Active Substance: NIVOLUMAB
     Indication: Renal cell carcinoma
     Dosage: 3 MILLIGRAM/KILOGRAM, Q3WK (114 MG)
     Route: 042
     Dates: start: 20200914, end: 20200914
  2. IPILIMUMAB [Suspect]
     Active Substance: IPILIMUMAB
     Indication: Renal cell carcinoma
     Dosage: 1 MILLIGRAM/KILOGRAM, Q3WK (38 MG)
     Route: 042
     Dates: start: 20200914, end: 20200914
  3. PANTOPRAZOLE [Concomitant]
     Active Substance: PANTOPRAZOLE
     Indication: Prophylaxis
     Route: 048
     Dates: start: 20200917, end: 20200922
  4. METAMIZOLE [Concomitant]
     Active Substance: METAMIZOLE
     Indication: Neoplasm
     Dosage: 500 ML/MG - DROPS - 40-40-40-40
     Route: 048
     Dates: start: 20200917, end: 20200922
  5. MOVICOL [Concomitant]
     Active Substance: POLYETHYLENE GLYCOL 3350\POTASSIUM CHLORIDE\SODIUM BICARBONATE\SODIUM CHLORIDE
     Indication: Neoplasm
     Dosage: SACHET
     Route: 048
     Dates: start: 20200917, end: 20200922
  6. OXYCODONE [Concomitant]
     Active Substance: OXYCODONE
     Indication: Neoplasm
     Dosage: 3-0-3
     Route: 048
     Dates: start: 20200917, end: 20200922
  7. AMITRIPTYLINE [Concomitant]
     Active Substance: AMITRIPTYLINE
     Indication: Neoplasm
     Route: 048
     Dates: start: 20200917, end: 20200922
  8. LACTULOSE [Concomitant]
     Active Substance: LACTULOSE
     Indication: Neoplasm
     Dosage: 10-0-0
     Route: 048
     Dates: start: 20200917, end: 20200922
  9. POTASSIUM CARBONATE\POTASSIUM CITRATE [Concomitant]
     Active Substance: POTASSIUM CARBONATE\POTASSIUM CITRATE
     Indication: Neoplasm
     Dosage: TID
     Route: 048
     Dates: start: 20200918, end: 20200922
  10. CALCIUM CARBONATE\CALCIUM LACTATE GLUCONATE [Concomitant]
     Active Substance: CALCIUM CARBONATE\CALCIUM LACTATE GLUCONATE
     Indication: Neoplasm
     Dosage: TID
     Route: 048
     Dates: start: 20200918, end: 20200918
  11. POTASSIUM CHLORIDE [Concomitant]
     Active Substance: POTASSIUM CHLORIDE
     Indication: Neoplasm
     Dosage: SINGLE ADMINISTRATION
     Route: 042
     Dates: start: 20200918, end: 20200918
  12. ALIZAPRIDE HYDROCHLORIDE [Concomitant]
     Active Substance: ALIZAPRIDE HYDROCHLORIDE
     Indication: Neoplasm
     Dosage: 2-2-2
     Route: 048
     Dates: start: 20200917, end: 20200922
  13. OXYCODONE [Concomitant]
     Active Substance: OXYCODONE
     Indication: Neoplasm
     Dosage: TID
     Route: 048
     Dates: start: 20200917, end: 20200922
  14. ZOFRAN [Concomitant]
     Active Substance: ONDANSETRON HYDROCHLORIDE
     Indication: Neoplasm
     Dosage: TID
     Route: 048
     Dates: start: 20200917, end: 20200922
  15. XGEVA [Concomitant]
     Active Substance: DENOSUMAB
     Indication: Neoplasm
     Route: 058
     Dates: end: 20200910
  16. CALCIUM D-500 [Concomitant]
     Indication: Neoplasm
     Route: 065
     Dates: start: 20200919, end: 20200919

REACTIONS (4)
  - Paraesthesia [Not Recovered/Not Resolved]
  - Peritonitis [Fatal]
  - Malignant neoplasm progression [Fatal]
  - Vomiting [Not Recovered/Not Resolved]

NARRATIVE: CASE EVENT DATE: 20200915
